FAERS Safety Report 24217178 (Version 2)
Quarter: 2025Q2

REPORT INFORMATION
  Report Type: Spontaneous
  Country: US (occurrence: US)
  Receive Date: 20240816
  Receipt Date: 20250513
  Transmission Date: 20250717
  Serious: No
  Sender: UNITED THERAPEUTICS
  Company Number: US-UNITED THERAPEUTICS-UNT-2024-007539

PATIENT
  Sex: Female
  Weight: 10.884 kg

DRUGS (21)
  1. TYVASO [Suspect]
     Active Substance: TREPROSTINIL
     Indication: Pulmonary arterial hypertension
     Dosage: 24 ?G, QID
     Dates: start: 2024, end: 2024
  2. TYVASO [Suspect]
     Active Substance: TREPROSTINIL
     Dosage: 42 ?G, QID
     Dates: start: 2024
  3. TYVASO [Suspect]
     Active Substance: TREPROSTINIL
  4. FUROSEMIDE [Concomitant]
     Active Substance: FUROSEMIDE
     Indication: Product used for unknown indication
  5. TIZANIDINE HYDROCHLORIDE [Concomitant]
     Active Substance: TIZANIDINE HYDROCHLORIDE
     Indication: Product used for unknown indication
  6. TYLENOL EXTRA STRENGTH [Concomitant]
     Active Substance: ACETAMINOPHEN
     Indication: Product used for unknown indication
  7. AMLODIPINE BESYLATE [Concomitant]
     Active Substance: AMLODIPINE BESYLATE
     Indication: Product used for unknown indication
  8. DICYCLOMINE [Concomitant]
     Active Substance: DICYCLOMINE HYDROCHLORIDE
     Indication: Product used for unknown indication
  9. CLONAZEPAM [Concomitant]
     Active Substance: CLONAZEPAM
     Indication: Product used for unknown indication
  10. SILDENAFIL CITRATE [Concomitant]
     Active Substance: SILDENAFIL CITRATE
     Indication: Product used for unknown indication
     Dosage: 40 MG, TID
  11. GABAPENTIN [Concomitant]
     Active Substance: GABAPENTIN
     Indication: Product used for unknown indication
  12. OXYGEN [Concomitant]
     Active Substance: OXYGEN
     Indication: Product used for unknown indication
  13. LOSARTAN POTASSIUM [Concomitant]
     Active Substance: LOSARTAN POTASSIUM
     Indication: Product used for unknown indication
  14. PROZAC [Concomitant]
     Active Substance: FLUOXETINE HYDROCHLORIDE
     Indication: Product used for unknown indication
  15. WELLBUTRIN SR [Concomitant]
     Active Substance: BUPROPION HYDROCHLORIDE
     Indication: Product used for unknown indication
  16. AMBIEN [Concomitant]
     Active Substance: ZOLPIDEM TARTRATE
     Indication: Product used for unknown indication
  17. PRILOSEC [Concomitant]
     Active Substance: OMEPRAZOLE MAGNESIUM
     Indication: Product used for unknown indication
  18. ADEMPAS [Concomitant]
     Active Substance: RIOCIGUAT
     Indication: Product used for unknown indication
  19. ALDACTONE [Concomitant]
     Active Substance: SPIRONOLACTONE
     Indication: Product used for unknown indication
  20. OPSUMIT [Concomitant]
     Active Substance: MACITENTAN
     Indication: Product used for unknown indication
  21. AZELASTINE HYDROCHLORIDE\FLUTICASONE PROPIONATE [Concomitant]
     Active Substance: AZELASTINE HYDROCHLORIDE\FLUTICASONE PROPIONATE
     Indication: Product used for unknown indication

REACTIONS (5)
  - Paranasal sinus hypersecretion [Unknown]
  - Cough [Unknown]
  - Sinus congestion [Unknown]
  - Dizziness [Unknown]
  - Heavy menstrual bleeding [Unknown]
